FAERS Safety Report 24664111 (Version 1)
Quarter: 2024Q4

REPORT INFORMATION
  Report Type: Spontaneous
  Country: RU (occurrence: RU)
  Receive Date: 20241126
  Receipt Date: 20241126
  Transmission Date: 20250115
  Serious: Yes (Death, Life-Threatening, Hospitalization, Other)
  Sender: Steriscience PTE
  Company Number: None

PATIENT
  Age: 13 Year
  Sex: Female

DRUGS (13)
  1. VANCOMYCIN [Suspect]
     Active Substance: VANCOMYCIN
     Indication: Candida infection
     Dosage: UNK
     Route: 065
  2. VANCOMYCIN [Suspect]
     Active Substance: VANCOMYCIN
     Dosage: REINITIATION
     Route: 065
  3. DOXORUBICIN [Suspect]
     Active Substance: DOXORUBICIN
     Indication: Ewing^s sarcoma
     Dosage: 4 CYCLICAL, VIDE
     Route: 065
  4. ETOPOSIDE [Suspect]
     Active Substance: ETOPOSIDE
     Indication: Ewing^s sarcoma
     Dosage: 4 CYCLICAL, VIDE
     Route: 065
  5. VINCRISTINE [Suspect]
     Active Substance: VINCRISTINE
     Indication: Ewing^s sarcoma
     Dosage: 4 CYCLICAL, VIDE
     Route: 065
  6. IFOSFAMIDE [Suspect]
     Active Substance: IFOSFAMIDE
     Indication: Ewing^s sarcoma
     Dosage: 4 CYCLICAL,VIDE
     Route: 065
  7. MEROPENEM [Suspect]
     Active Substance: MEROPENEM
     Indication: Candida infection
     Dosage: UNK
     Route: 065
  8. MEROPENEM [Suspect]
     Active Substance: MEROPENEM
     Dosage: REINITIATION
     Route: 065
  9. AMIKACIN [Suspect]
     Active Substance: AMIKACIN
     Indication: Candida infection
     Dosage: UNK
     Route: 065
  10. AMIKACIN [Suspect]
     Active Substance: AMIKACIN
     Dosage: REINITIATION
     Route: 065
  11. FLUCONAZOLE [Suspect]
     Active Substance: FLUCONAZOLE
     Indication: Candida infection
     Dosage: 6 MILLIGRAM/KILOGRAM, QD
     Route: 042
  12. FLUCONAZOLE [Suspect]
     Active Substance: FLUCONAZOLE
     Dosage: REINITIATION
     Route: 065
  13. FLUCONAZOLE [Suspect]
     Active Substance: FLUCONAZOLE
     Dosage: 400 MILLIGRAM, QD
     Route: 048

REACTIONS (10)
  - Multiple organ dysfunction syndrome [Fatal]
  - Candida infection [Fatal]
  - Candida infection [Fatal]
  - Systemic candida [Fatal]
  - Infection [Fatal]
  - Vulvovaginitis [None]
  - Cystitis [Unknown]
  - Enterococcal infection [None]
  - Dermatitis [Unknown]
  - Drug resistance [Unknown]
